FAERS Safety Report 5933795-6 (Version None)
Quarter: 2008Q4

REPORT INFORMATION
  Report Type: 
  Country: None (occurrence: None)
  Receive Date: 20081029
  Receipt Date: 20081020
  Transmission Date: 20090506
  Serious: Yes (Hospitalization)
  Sender: FDA-Public Use
  Company Number: US-KINGPHARMUSA00001-K200801206

PATIENT

DRUGS (8)
  1. ALTACE [Suspect]
     Dosage: 2.5 MG, QD
     Route: 048
     Dates: start: 20080708, end: 20080711
  2. ALTACE [Suspect]
     Dosage: 5 MG, QD
     Route: 048
     Dates: start: 20080712
  3. OMEPRAZOLE [Suspect]
     Dosage: 20 MG, QD
     Route: 048
     Dates: end: 20080701
  4. TENSTATEN                          /00924301/ [Suspect]
     Dosage: UNK, UNK
     Route: 048
     Dates: end: 20080707
  5. MICARDIS [Suspect]
     Dosage: 80 MG, QD
     Route: 048
     Dates: end: 20080701
  6. ZALDIAR                            /01573601/ [Concomitant]
  7. CERIS [Concomitant]
  8. XANAX [Concomitant]

REACTIONS (3)
  - HYPONATRAEMIA [None]
  - HYPOTHYROIDISM [None]
  - ICHTHYOSIS [None]
